FAERS Safety Report 18550694 (Version 1)
Quarter: 2020Q4

REPORT INFORMATION
  Report Type: Spontaneous
  Country: US (occurrence: US)
  Receive Date: 20201126
  Receipt Date: 20201126
  Transmission Date: 20210114
  Serious: No
  Sender: FDA-Public Use
  Company Number: US-ASTRAZENECA-2020SF50445

PATIENT
  Sex: Female
  Weight: 85.7 kg

DRUGS (9)
  1. CRESTOR [Suspect]
     Active Substance: ROSUVASTATIN CALCIUM
     Indication: BLOOD CHOLESTEROL INCREASED
     Route: 048
  2. SYMLIN [Suspect]
     Active Substance: PRAMLINTIDE ACETATE
     Indication: TYPE 1 DIABETES MELLITUS
     Dosage: NOW 45 MG AND WILL REACH HER DOSAGE GOAL OF 60 BEGINNING NEXT WEEK
     Route: 058
     Dates: start: 202009
  3. LIVALO [Concomitant]
     Active Substance: PITAVASTATIN CALCIUM
  4. GLUCOSAMINE [Concomitant]
     Active Substance: GLUCOSAMINE
  5. VITAMINS [Concomitant]
     Active Substance: VITAMINS
  6. SYMLIN [Suspect]
     Active Substance: PRAMLINTIDE ACETATE
     Indication: TYPE 1 DIABETES MELLITUS
     Dosage: STARTED ON 15 FOR A WEEK, WENT TO 30 FOR A WEEK
     Route: 058
  7. TUMERIC [Concomitant]
     Active Substance: HERBALS\TURMERIC
     Dosage: OVER THE COUNTER
  8. TOPROL XL [Concomitant]
     Active Substance: METOPROLOL SUCCINATE
     Dosage: GENERIC
  9. AMITRIPTYLINE [Concomitant]
     Active Substance: AMITRIPTYLINE

REACTIONS (4)
  - Drug hypersensitivity [Unknown]
  - Drug ineffective [Unknown]
  - Muscle spasms [Unknown]
  - Eye haemorrhage [Unknown]
